FAERS Safety Report 4348917-0 (Version None)
Quarter: 2004Q1

REPORT INFORMATION
  Report Type: 
  Country: None (occurrence: None)
  Receive Date: 20040325
  Receipt Date: 20040113
  Transmission Date: 20041129
  Serious: No
  Sender: FDA-Public Use
  Company Number: USA031151994

PATIENT
  Age: 78 Year
  Sex: Female

DRUGS (4)
  1. FORTEO [Suspect]
     Dates: start: 20031107
  2. METHOTREXATE [Concomitant]
  3. ASPIRIN [Concomitant]
  4. ZANTAC [Concomitant]

REACTIONS (4)
  - DIZZINESS [None]
  - INJECTION SITE DISCOLOURATION [None]
  - PAIN IN EXTREMITY [None]
  - SKIN WARM [None]
